FAERS Safety Report 12711874 (Version 1)
Quarter: 2016Q3

REPORT INFORMATION
  Report Type: Spontaneous
  Country: GB (occurrence: GB)
  Receive Date: 20160902
  Receipt Date: 20160902
  Transmission Date: 20161109
  Serious: Yes (Death, Hospitalization)
  Sender: FDA-Public Use
  Company Number: GB-ACCORD-042315

PATIENT
  Age: 75 Year
  Sex: Male
  Weight: 106 kg

DRUGS (8)
  1. SALBUTAMOL [Concomitant]
     Active Substance: ALBUTEROL
  2. DOXYCYCLINE. [Concomitant]
     Active Substance: DOXYCYCLINE
     Dosage: RESCUE PACK PRIOR TO ADMISSION.
  3. LEFLUNOMIDE. [Interacting]
     Active Substance: LEFLUNOMIDE
     Indication: RHEUMATOID ARTHRITIS
     Route: 048
     Dates: start: 20151112, end: 20160526
  4. HYDROXYCHLOROQUINE [Concomitant]
     Active Substance: HYDROXYCHLOROQUINE
  5. ATORVASTATIN [Concomitant]
     Active Substance: ATORVASTATIN
  6. FOLIC ACID. [Concomitant]
     Active Substance: FOLIC ACID
  7. FLUTICASONE PROPIONATE/SALMETEROL XINAFOATE [Concomitant]
  8. METHOTREXATE. [Suspect]
     Active Substance: METHOTREXATE
     Indication: RHEUMATOID ARTHRITIS
     Dosage: ORAL 25 MG FROM 17-DEC-2012 TO 18-JUL-2014
     Route: 058
     Dates: start: 20140718, end: 20160524

REACTIONS (4)
  - Interstitial lung disease [Fatal]
  - Malaise [Not Recovered/Not Resolved]
  - Drug interaction [Unknown]
  - Urinary tract disorder [Recovered/Resolved]

NARRATIVE: CASE EVENT DATE: 20160524
